FAERS Safety Report 13939751 (Version 2)
Quarter: 2017Q3

REPORT INFORMATION
  Report Type: Spontaneous
  Country: US (occurrence: US)
  Receive Date: 20170906
  Receipt Date: 20170912
  Transmission Date: 20171127
  Serious: Yes (Other)
  Sender: FDA-Public Use
  Company Number: US-SUN PHARMACEUTICAL INDUSTRIES LTD-2017US-149159

PATIENT
  Age: 29 Year
  Sex: Male

DRUGS (6)
  1. METHYLPREDNISOLONE. [Concomitant]
     Active Substance: METHYLPREDNISOLONE
     Indication: ASTHMA
     Dosage: UNK
     Route: 042
  2. METHYLPREDNISOLONE. [Concomitant]
     Active Substance: METHYLPREDNISOLONE
     Indication: RESPIRATORY ACIDOSIS
  3. SALBUTAMOL [Suspect]
     Active Substance: ALBUTEROL
     Indication: RESPIRATORY ACIDOSIS
     Dosage: UNK UNK, PRN
     Route: 055
  4. IPRATROPIUM [Concomitant]
     Active Substance: IPRATROPIUM
     Indication: ASTHMA
  5. SALBUTAMOL [Suspect]
     Active Substance: ALBUTEROL
     Indication: ASTHMA
  6. IPRATROPIUM [Concomitant]
     Active Substance: IPRATROPIUM
     Indication: RESPIRATORY ACIDOSIS
     Dosage: NEBULIZER
     Route: 065

REACTIONS (2)
  - Lactic acidosis [Recovered/Resolved]
  - Tachypnoea [Recovering/Resolving]
